FAERS Safety Report 4609397-0 (Version None)
Quarter: 2005Q2

REPORT INFORMATION
  Report Type: 
  Country: None (occurrence: None)
  Receive Date: 20050301
  Receipt Date: 20050217
  Transmission Date: 20051028
  Serious: No
  Sender: FDA-Public Use
  Company Number: 2004UW26111

PATIENT
  Age: 67 Year
  Sex: Female
  Weight: 56.245 kg

DRUGS (8)
  1. CRESTOR [Suspect]
     Indication: BLOOD CHOLESTEROL INCREASED
     Dosage: 10 MG QD PO
     Route: 048
     Dates: start: 20031118, end: 20041101
  2. NADOLOL [Concomitant]
  3. MAXZIDE [Concomitant]
  4. ACIPHEX [Concomitant]
  5. ATROVENT [Concomitant]
  6. SPORANOX [Concomitant]
  7. VIOXX [Concomitant]
  8. QVAR 40 [Concomitant]

REACTIONS (1)
  - RENAL FAILURE [None]
